FAERS Safety Report 5235734-2 (Version None)
Quarter: 2007Q1

REPORT INFORMATION
  Report Type: 
  Country: None (occurrence: None)
  Receive Date: 20061208
  Receipt Date: 20051123
  Transmission Date: 20070707
  Serious: Yes (Other)
  Sender: FDA-Public Use
  Company Number: 2005UW17883

PATIENT
  Age: 66 Year
  Sex: Male
  Weight: 72.574 kg

DRUGS (4)
  1. CRESTOR [Suspect]
     Indication: BLOOD CHOLESTEROL INCREASED
     Dosage: 5 MG FOUR DAYS A WEEK
  2. ACIPHEX [Concomitant]
  3. SINEMET [Concomitant]
  4. ZETIA [Concomitant]

REACTIONS (2)
  - MUSCLE RIGIDITY [None]
  - PAIN IN EXTREMITY [None]
